FAERS Safety Report 5399994-X (Version None)
Quarter: 2007Q3

REPORT INFORMATION
  Report Type: 
  Country: None (occurrence: None)
  Receive Date: 20070726
  Receipt Date: 20070726
  Transmission Date: 20080115
  Serious: Yes (Life-Threatening)
  Sender: FDA-Public Use
  Company Number: None

PATIENT
  Age: 54 Year
  Sex: Female
  Weight: 60.782 kg

DRUGS (1)
  1. XYLOCAINE [Suspect]
     Indication: UTERINE DILATION AND CURETTAGE
     Dates: start: 20070720, end: 20070720

REACTIONS (10)
  - DEPRESSED LEVEL OF CONSCIOUSNESS [None]
  - HYPOAESTHESIA [None]
  - HYPOAESTHESIA ORAL [None]
  - INCORRECT ROUTE OF DRUG ADMINISTRATION [None]
  - INJECTION SITE PAIN [None]
  - SENSATION OF HEAVINESS [None]
  - SPEECH DISORDER [None]
  - TEARFULNESS [None]
  - TINNITUS [None]
  - TREMOR [None]
